FAERS Safety Report 9604220 (Version 1)
Quarter: 2013Q2

REPORT INFORMATION
  Report Type: Spontaneous
  Country: US (occurrence: None)
  Receive Date: 20130514
  Receipt Date: 20130514
  Transmission Date: 20140414
  Serious: Yes (Other)
  Sender: FDA-Public Use
  Company Number: 94587

PATIENT
  Age: 62 Year
  Sex: Male
  Weight: 86.18 kg

DRUGS (7)
  1. CAMPHOR, MENTHOL, MENTHYL SALICYLATE [Suspect]
     Indication: PAIN
     Dosage: USED DAILY, TOPICAL
     Route: 061
     Dates: start: 20130429, end: 20130503
  2. SALONPAS PAIN RELIEVING PATCH -L [Concomitant]
  3. LIDOCAINE PATCH [Concomitant]
  4. ARNICA CREAM [Concomitant]
  5. ASPIRIN [Concomitant]
  6. CHOLESTEROL LOWERING MEDICATION (STATIN) [Concomitant]
  7. PROSTATE MEDICATION [Concomitant]

REACTIONS (1)
  - Haematochezia [None]
